FAERS Safety Report 5983630-5 (Version None)
Quarter: 2008Q4

REPORT INFORMATION
  Report Type: 
  Country: None (occurrence: None)
  Receive Date: 20081208
  Receipt Date: 20081204
  Transmission Date: 20090506
  Serious: Yes (Disabling)
  Sender: FDA-Public Use
  Company Number: US-MERCK-0810USA01830

PATIENT
  Age: 64 Year
  Sex: Male

DRUGS (6)
  1. ISENTRESS [Suspect]
     Indication: HIV INFECTION
     Route: 048
     Dates: start: 20080114, end: 20080925
  2. KALETRA [Suspect]
     Indication: HIV INFECTION
     Route: 048
     Dates: start: 20030801
  3. CORTICOSTEROIDS (UNSPECIFIED) [Suspect]
     Indication: BACK PAIN
     Route: 065
  4. VIREAD [Concomitant]
     Indication: HIV INFECTION
     Route: 048
     Dates: start: 20021001
  5. EMTRIVA [Concomitant]
     Indication: HIV INFECTION
     Route: 048
     Dates: start: 20030801
  6. [THERAPY UNSPECIFIED] [Concomitant]
     Indication: LIPIDS
     Route: 065
     Dates: start: 20030101

REACTIONS (6)
  - DISTURBANCE IN ATTENTION [None]
  - MUSCLE ATROPHY [None]
  - MUSCULAR WEAKNESS [None]
  - MYOPATHY [None]
  - SWELLING FACE [None]
  - WEIGHT DECREASED [None]
